FAERS Safety Report 7917396-6 (Version None)
Quarter: 2011Q4

REPORT INFORMATION
  Report Type: 
  Country: None (occurrence: None)
  Receive Date: 20111116
  Receipt Date: 20111109
  Transmission Date: 20120403
  Serious: Yes (Other)
  Sender: FDA-Public Use
  Company Number: US-VERTEX PHARMACEUTICALS INC.-AE-2011-002108

PATIENT
  Sex: Female
  Weight: 60.382 kg

DRUGS (3)
  1. RIBAVIRIN [Concomitant]
     Indication: HEPATITIS C
     Route: 048
     Dates: start: 20110923
  2. INCIVEK [Suspect]
     Indication: HEPATITIS C
     Route: 048
     Dates: start: 20110923
  3. PEGASYS [Concomitant]
     Indication: HEPATITIS C
     Route: 058
     Dates: start: 20110923

REACTIONS (25)
  - PHOTOPHOBIA [None]
  - DIPLOPIA [None]
  - PALPITATIONS [None]
  - NIGHT SWEATS [None]
  - STOMATITIS [None]
  - BACK PAIN [None]
  - BLINDNESS TRANSIENT [None]
  - RHEUMATOID ARTHRITIS [None]
  - PAIN IN EXTREMITY [None]
  - DECREASED APPETITE [None]
  - DIZZINESS [None]
  - ARTHRALGIA [None]
  - CARDIOVASCULAR DISORDER [None]
  - PARAESTHESIA [None]
  - MEMORY IMPAIRMENT [None]
  - HYPOAESTHESIA [None]
  - PRURITUS [None]
  - DEPRESSED MOOD [None]
  - ASTHENIA [None]
  - MYALGIA [None]
  - BALANCE DISORDER [None]
  - MOVEMENT DISORDER [None]
  - FATIGUE [None]
  - PERSONALITY CHANGE [None]
  - NERVOUSNESS [None]
